FAERS Safety Report 6356410-9 (Version None)
Quarter: 2009Q3

REPORT INFORMATION
  Report Type: 
  Country: None (occurrence: None)
  Receive Date: 20090915
  Receipt Date: 20090908
  Transmission Date: 20100115
  Serious: Yes (Other)
  Sender: FDA-Public Use
  Company Number: US-ELI_LILLY_AND_COMPANY-US200909001615

PATIENT
  Sex: Female
  Weight: 87.075 kg

DRUGS (14)
  1. BYETTA [Suspect]
     Indication: TYPE 2 DIABETES MELLITUS
     Dosage: 10 UG, 2/D
     Dates: start: 20080101
  2. METFORMIN HCL [Concomitant]
     Indication: TYPE 2 DIABETES MELLITUS
     Dosage: 500 MG, DAILY (1/D)
     Route: 048
  3. GLIMEPIRIDE [Concomitant]
     Indication: TYPE 2 DIABETES MELLITUS
     Dosage: 4 MG, 2/D
     Route: 048
  4. PREVACID [Concomitant]
     Dosage: 30 MG, DAILY (1/D)
     Route: 048
  5. ATENOLOL [Concomitant]
     Dosage: 50 MG, 2/D
     Route: 048
  6. LISINOPRIL [Concomitant]
     Dosage: 10 MG, 2/D
     Route: 048
  7. NORVASC [Concomitant]
     Dosage: 5 MG, 2/D
     Route: 048
  8. TRICOR [Concomitant]
     Dosage: 145 MG, DAILY (1/D)
     Route: 048
  9. CATAPRES /00171102/ [Concomitant]
     Dosage: 1 MG, 3/D
     Route: 048
  10. ASPIRIN [Concomitant]
     Dosage: 81 MG, DAILY (1/D)
     Route: 048
  11. ABILIFY [Concomitant]
     Dosage: 10 MG, DAILY (1/D)
     Route: 048
  12. ARICEPT [Concomitant]
     Dosage: 10 MG, DAILY (1/D)
     Route: 048
  13. LASIX [Concomitant]
     Dosage: 40 MG, DAILY (1/D)
     Route: 048
  14. DETROL /01350201/ [Concomitant]
     Dosage: 4 MG, DAILY (1/D)
     Route: 048

REACTIONS (2)
  - DEVICE MISUSE [None]
  - HEMIPARESIS [None]
